FAERS Safety Report 13372096 (Version 1)
Quarter: 2017Q1

REPORT INFORMATION
  Report Type: Report from Study
  Country: CN (occurrence: CN)
  Receive Date: 20170327
  Receipt Date: 20170327
  Transmission Date: 20170429
  Serious: Yes (Hospitalization)
  Sender: FDA-Public Use
  Company Number: CN-ROCHE-1787512

PATIENT
  Age: 64 Year
  Sex: Female
  Weight: 60 kg

DRUGS (2)
  1. AVASTIN [Suspect]
     Active Substance: BEVACIZUMAB
     Route: 041
  2. AVASTIN [Suspect]
     Active Substance: BEVACIZUMAB
     Indication: COLON CANCER
     Route: 041
     Dates: start: 20160106, end: 20170118

REACTIONS (6)
  - Memory impairment [Unknown]
  - Asthenia [Unknown]
  - Hepatic function abnormal [Recovered/Resolved]
  - Mental disorder [Unknown]
  - Blood creatinine increased [Unknown]
  - Liver injury [Unknown]

NARRATIVE: CASE EVENT DATE: 20170117
